FAERS Safety Report 14292832 (Version 4)
Quarter: 2018Q1

REPORT INFORMATION
  Report Type: Report from Study
  Country: CA (occurrence: CA)
  Receive Date: 20171215
  Receipt Date: 20180322
  Transmission Date: 20180509
  Serious: Yes (Hospitalization)
  Sender: FDA-Public Use
  Company Number: CA-PFIZER INC-2017530480

PATIENT
  Age: 56 Year
  Sex: Female
  Weight: 71.3 kg

DRUGS (7)
  1. PACLITAXEL. [Suspect]
     Active Substance: PACLITAXEL
     Indication: OVARIAN CANCER
     Dosage: 144 MG, WEEKLY
     Route: 042
     Dates: start: 20171114
  2. STEMETIL /00013301/ [Concomitant]
     Active Substance: PROCHLORPERAZINE
     Indication: NAUSEA
     Dosage: 10 MG, EVERY 6 HOURS AS NEEDED
     Route: 048
     Dates: start: 20171113
  3. ACETAMINOPHEN. [Concomitant]
     Active Substance: ACETAMINOPHEN
     Indication: PAIN
     Dosage: 1 G, EVERY 6 HOURS
     Route: 048
     Dates: start: 20171005
  4. LAX-A-DAY [Concomitant]
     Indication: CONSTIPATION
     Dosage: 17 G, DAILY
     Route: 048
     Dates: start: 20171005
  5. CARBOPLATIN. [Suspect]
     Active Substance: CARBOPLATIN
     Indication: OVARIAN CANCER
     Dosage: 700 MG, EVERY 3 WEEKS
     Route: 042
     Dates: start: 20171114
  6. AVELUMAB [Suspect]
     Active Substance: AVELUMAB
     Indication: OVARIAN CANCER
     Dosage: 713 MG, EVERY 3 WEEKS
     Route: 042
     Dates: start: 20171114
  7. FRAGMIN [Concomitant]
     Active Substance: DALTEPARIN SODIUM
     Indication: ANTICOAGULANT THERAPY
     Dosage: 13500 IU, UNK
     Route: 058
     Dates: start: 20171213

REACTIONS (2)
  - Phlebitis [Recovered/Resolved]
  - Pulmonary embolism [Recovered/Resolved]

NARRATIVE: CASE EVENT DATE: 20171207
